FAERS Safety Report 14227240 (Version 2)
Quarter: 2018Q1

REPORT INFORMATION
  Report Type: Report from Study
  Country: HU (occurrence: HU)
  Receive Date: 20171127
  Receipt Date: 20180115
  Transmission Date: 20180508
  Serious: Yes (Other)
  Sender: FDA-Public Use
  Company Number: HU-BAYER-2017-045363

PATIENT
  Sex: Male
  Weight: 85 kg

DRUGS (6)
  1. STIVARGA [Suspect]
     Active Substance: REGORAFENIB
     Indication: COLORECTAL CANCER METASTATIC
     Dosage: 160 MG (4X40) DAILY
     Route: 048
     Dates: start: 2017
  2. STIVARGA [Suspect]
     Active Substance: REGORAFENIB
     Indication: COLORECTAL CANCER METASTATIC
     Dosage: 160 MG, QD
     Route: 048
     Dates: start: 20170301, end: 2017
  3. STIVARGA [Suspect]
     Active Substance: REGORAFENIB
     Indication: COLORECTAL CANCER METASTATIC
     Dosage: 80 MG, DAILY
     Route: 048
     Dates: start: 2017, end: 2017
  4. TALLITON [Concomitant]
     Active Substance: CARVEDILOL
     Indication: HYPERTENSION
     Dosage: 12.5 MG, QD
  5. STIVARGA [Suspect]
     Active Substance: REGORAFENIB
     Indication: COLORECTAL CANCER METASTATIC
     Dosage: 120 MG (3X40) DAILY
     Route: 048
     Dates: start: 2017, end: 2017
  6. COVERCARD [Concomitant]
     Active Substance: AMLODIPINE BESYLATE\PERINDOPRIL ARGININE
     Indication: HYPERTENSION
     Dosage: 5 MG, QD

REACTIONS (18)
  - Myalgia [Recovering/Resolving]
  - Fatigue [Recovered/Resolved]
  - Dysphonia [Recovering/Resolving]
  - Rash [Recovered/Resolved]
  - Decreased appetite [Not Recovered/Not Resolved]
  - Dysphonia [Recovered/Resolved]
  - Pericardial effusion [Not Recovered/Not Resolved]
  - Swelling face [None]
  - Swelling face [Recovered/Resolved]
  - Abdominal distension [Not Recovered/Not Resolved]
  - Rash generalised [Recovered/Resolved]
  - Decreased appetite [Recovered/Resolved]
  - Dyspnoea exertional [Not Recovered/Not Resolved]
  - Rash erythematous [Recovered/Resolved]
  - Dysphonia [Recovering/Resolving]
  - Rash [Recovered/Resolved]
  - Metastases to liver [None]
  - Rash [Recovering/Resolving]

NARRATIVE: CASE EVENT DATE: 20170306
